FAERS Safety Report 23130367 (Version 1)
Quarter: 2023Q4

REPORT INFORMATION
  Report Type: Spontaneous
  Country: CN (occurrence: None)
  Receive Date: 20231031
  Receipt Date: 20231031
  Transmission Date: 20240109
  Serious: Yes (Hospitalization)
  Sender: FDA-Public Use
  Company Number: 2023A243402

PATIENT
  Age: 23640 Day
  Sex: Male
  Weight: 73 kg

DRUGS (1)
  1. DAPAGLIFLOZIN [Suspect]
     Active Substance: DAPAGLIFLOZIN
     Indication: Diabetic nephropathy
     Route: 048
     Dates: start: 20230720, end: 20230823

REACTIONS (3)
  - Urine ketone body present [Recovering/Resolving]
  - Glycosylated haemoglobin increased [Unknown]
  - Glucose urine present [Unknown]

NARRATIVE: CASE EVENT DATE: 20230823
